FAERS Safety Report 8060315-5 (Version None)
Quarter: 2012Q1

REPORT INFORMATION
  Report Type: 
  Country: None (occurrence: None)
  Receive Date: 20120120
  Receipt Date: 20120116
  Transmission Date: 20120608
  Serious: No
  Sender: FDA-Public Use
  Company Number: US-PFIZER INC-2012013195

PATIENT

DRUGS (3)
  1. ALAVERT [Suspect]
     Indication: THROAT IRRITATION
     Dosage: UNK
     Route: 065
  2. ALAVERT [Suspect]
     Indication: HYPERSENSITIVITY
  3. ALAVERT [Suspect]
     Indication: NASAL DISCOMFORT

REACTIONS (2)
  - AGITATION [None]
  - DRUG INEFFECTIVE [None]
